FAERS Safety Report 8936708 (Version 2)
Quarter: 2012Q4

REPORT INFORMATION
  Report Type: 
  Country: US (occurrence: US)
  Receive Date: 20121130
  Receipt Date: 20121210
  Transmission Date: 20130627
  Serious: Yes (Hospitalization)
  Sender: FDA-Public Use
  Company Number: US-ROCHE-1160848

PATIENT
  Sex: Male

DRUGS (5)
  1. PEGASYS [Suspect]
     Indication: HEPATITIS C
     Route: 058
     Dates: start: 20120706, end: 20121130
  2. COPEGUS [Suspect]
     Indication: HEPATITIS C
     Dosage: divided doses 600/600
     Route: 065
     Dates: start: 20120706
  3. TELAPREVIR [Suspect]
     Indication: CHRONIC HEPATITIS C
     Route: 065
     Dates: start: 20120706
  4. PERCOCET [Concomitant]
  5. ANTIBIOTICS (NOT SPECIFIED) [Concomitant]
     Route: 042

REACTIONS (3)
  - Limb traumatic amputation [Unknown]
  - Drug dose omission [Unknown]
  - Headache [Unknown]
